FAERS Safety Report 5344485-5 (Version None)
Quarter: 2007Q2

REPORT INFORMATION
  Report Type: 
  Country: None (occurrence: None)
  Receive Date: 20070604
  Receipt Date: 20070523
  Transmission Date: 20071010
  Serious: Yes (Other)
  Sender: FDA-Public Use
  Company Number: US-PFIZER INC-2007018298

PATIENT
  Sex: Female
  Weight: 57.2 kg

DRUGS (7)
  1. NEURONTIN [Suspect]
     Dates: start: 19980101, end: 20020101
  2. LYRICA [Suspect]
     Indication: FIBROMYALGIA
     Dates: start: 20060901, end: 20070222
  3. LYRICA [Suspect]
     Indication: PAIN
  4. LYRICA [Suspect]
     Indication: NEURALGIA
  5. LYRICA [Suspect]
     Indication: ARTHRALGIA
  6. DIAZEPAM [Concomitant]
     Indication: ANXIETY DISORDER
     Route: 048
  7. DIAZEPAM [Concomitant]
     Indication: SLEEP DISORDER

REACTIONS (7)
  - COMA [None]
  - DRUG WITHDRAWAL SYNDROME [None]
  - GAIT DISTURBANCE [None]
  - LIVER DISORDER [None]
  - NEURALGIA [None]
  - PAIN [None]
  - THINKING ABNORMAL [None]
